FAERS Safety Report 13256619 (Version 1)
Quarter: 2017Q1

REPORT INFORMATION
  Report Type: Spontaneous
  Country: BR (occurrence: BR)
  Receive Date: 20170221
  Receipt Date: 20170221
  Transmission Date: 20170428
  Serious: Yes (Hospitalization, Other)
  Sender: FDA-Public Use
  Company Number: BR-ALEXION PHARMACEUTICALS INC.-A201701717

PATIENT
  Age: 27 Year
  Sex: Female

DRUGS (1)
  1. SOLIRIS [Suspect]
     Active Substance: ECULIZUMAB
     Indication: HAEMOLYTIC URAEMIC SYNDROME
     Dosage: 900 MG, QW FOR 4 WKS
     Route: 042
     Dates: start: 20170208

REACTIONS (3)
  - Thrombocytopenia [Recovering/Resolving]
  - Blood lactate dehydrogenase increased [Unknown]
  - Haemolysis [Recovering/Resolving]

NARRATIVE: CASE EVENT DATE: 20170215
